FAERS Safety Report 8100242-8 (Version None)
Quarter: 2012Q1

REPORT INFORMATION
  Report Type: 
  Country: None (occurrence: None)
  Receive Date: 20120131
  Receipt Date: 20120120
  Transmission Date: 20120608
  Serious: Yes (Hospitalization, Other)
  Sender: FDA-Public Use
  Company Number: DE-JNJFOC-20120109849

PATIENT
  Age: 52 Year
  Sex: Female
  Weight: 66 kg

DRUGS (5)
  1. BETAMETHASONE [Concomitant]
  2. CALCIPOTRIOL [Concomitant]
  3. REMICADE [Suspect]
     Indication: PSORIASIS
     Route: 042
     Dates: start: 20051027, end: 20090119
  4. STELARA [Concomitant]
     Indication: PRODUCT USED FOR UNKNOWN INDICATION
     Dosage: DOSE REPORTED AS QUARTERLY
     Dates: start: 20090326
  5. BETADERMIC [Concomitant]

REACTIONS (1)
  - COLON CANCER [None]
